FAERS Safety Report 6345811-0 (Version None)
Quarter: 2009Q3

REPORT INFORMATION
  Report Type: 
  Country: None (occurrence: None)
  Receive Date: 20090909
  Receipt Date: 20090828
  Transmission Date: 20100115
  Serious: Yes (Hospitalization)
  Sender: FDA-Public Use
  Company Number: DE-ELI_LILLY_AND_COMPANY-DE200908006439

PATIENT
  Sex: Male
  Weight: 60 kg

DRUGS (3)
  1. GEMCITABINE HCL [Suspect]
     Dosage: 1200 MG/M2, UNK
     Dates: start: 20090710
  2. CETUXIMAB [Suspect]
     Dosage: 250 MG/M2, UNK
     Dates: start: 20090710
  3. CARBOPLATIN [Suspect]
     Dosage: AUC 5
     Dates: start: 20090710

REACTIONS (1)
  - EPIDIDYMITIS [None]
